FAERS Safety Report 21972558 (Version 1)
Quarter: 2023Q1

REPORT INFORMATION
  Report Type: Spontaneous
  Country: US (occurrence: US)
  Receive Date: 20230209
  Receipt Date: 20230209
  Transmission Date: 20230417
  Serious: Yes (Death)
  Sender: FDA-Public Use
  Company Number: US-MYLANLABS-2023M1013389

PATIENT
  Age: 31 Year
  Sex: Male

DRUGS (5)
  1. FENTANYL [Suspect]
     Active Substance: FENTANYL
     Indication: Product used for unknown indication
     Dosage: UNK
     Route: 065
  2. EPINEPHRINE [Suspect]
     Active Substance: EPINEPHRINE
     Indication: Drug use disorder
     Dosage: UNK
     Route: 065
  3. EPINEPHRINE [Suspect]
     Active Substance: EPINEPHRINE
     Indication: Cardiac arrest
  4. NALOXONE [Suspect]
     Active Substance: NALOXONE
     Indication: Drug use disorder
     Dosage: UNK
     Route: 065
  5. NALOXONE [Suspect]
     Active Substance: NALOXONE
     Indication: Cardiac arrest

REACTIONS (4)
  - Drug use disorder [Fatal]
  - Cardiac arrest [Fatal]
  - Intentional product misuse [Fatal]
  - Drug ineffective [Fatal]
